FAERS Safety Report 8209336-X (Version None)
Quarter: 2012Q1

REPORT INFORMATION
  Report Type: 
  Country: None (occurrence: None)
  Receive Date: 20120314
  Receipt Date: 20120305
  Transmission Date: 20120608
  Serious: Yes (Hospitalization)
  Sender: FDA-Public Use
  Company Number: US-BAYER-2011-106009

PATIENT
  Age: 26 Year
  Sex: Female
  Weight: 86.168 kg

DRUGS (16)
  1. ALBUTEROL [Concomitant]
     Dosage: UNK
     Dates: start: 20100204
  2. DIURETICS [Concomitant]
  3. DROSPIRENONE AND ETHINYL ESTRADIOL [Suspect]
     Indication: AMENORRHOEA
     Dosage: UNK
     Dates: start: 20050101, end: 20080101
  4. DROSPIRENONE AND ETHINYL ESTRADIOL [Suspect]
     Dosage: UNK
     Dates: start: 20090101, end: 20100101
  5. MUCINEX [Concomitant]
     Dosage: UNK
     Route: 048
     Dates: start: 20100204
  6. SPIRONOLACTONE [Concomitant]
     Indication: POLYCYSTIC OVARIES
  7. YAZ [Suspect]
     Indication: AMENORRHOEA
     Dosage: UNK
     Dates: start: 20050101, end: 20080101
  8. METFORMIN HCL [Concomitant]
     Indication: POLYCYSTIC OVARIES
  9. NSAID'S [Concomitant]
  10. ZYRTEC [Concomitant]
  11. YASMIN [Suspect]
     Indication: AMENORRHOEA
     Dosage: UNK
     Dates: start: 20050101, end: 20080101
  12. YASMIN [Suspect]
     Dosage: UNK
     Dates: start: 20090101, end: 20100101
  13. IBUPROFEN [Concomitant]
     Dosage: 600 MG, UNK
     Route: 048
     Dates: start: 20100204
  14. ASCORBIC ACID [Concomitant]
  15. YAZ [Suspect]
     Indication: DYSMENORRHOEA
     Dosage: UNK
     Dates: start: 20090101, end: 20100101
  16. CODEINE W/GUAIFENESIN [Concomitant]
     Dosage: UNK
     Route: 048
     Dates: start: 20100204

REACTIONS (8)
  - PULMONARY EMBOLISM [None]
  - ANXIETY [None]
  - INJURY [None]
  - DEEP VEIN THROMBOSIS [None]
  - GENERAL PHYSICAL HEALTH DETERIORATION [None]
  - EMOTIONAL DISTRESS [None]
  - PAIN [None]
  - ANHEDONIA [None]
